FAERS Safety Report 20147919 (Version 4)
Quarter: 2022Q2

REPORT INFORMATION
  Report Type: Spontaneous
  Country: PT (occurrence: PT)
  Receive Date: 20211203
  Receipt Date: 20220621
  Transmission Date: 20220721
  Serious: Yes (Other)
  Sender: FDA-Public Use
  Company Number: PT-JNJFOC-20211127106

PATIENT
  Age: 54 Year
  Sex: Male

DRUGS (17)
  1. EMTRICITABINE\TENOFOVIR [Suspect]
     Active Substance: EMTRICITABINE\TENOFOVIR
     Indication: Product used for unknown indication
     Dosage: UNK
     Route: 065
  2. TENOFOVIR [Suspect]
     Active Substance: TENOFOVIR
     Indication: Antiretroviral therapy
     Dosage: UNK
     Route: 065
     Dates: start: 2011
  3. TENOFOVIR [Suspect]
     Active Substance: TENOFOVIR
     Indication: HIV-2 infection
  4. TENOFOVIR [Suspect]
     Active Substance: TENOFOVIR
     Indication: HIV infection
  5. DARUNAVIR [Suspect]
     Active Substance: DARUNAVIR
     Indication: Antiretroviral therapy
     Dosage: UNK
     Route: 065
  6. RITONAVIR [Suspect]
     Active Substance: RITONAVIR
     Indication: HIV infection
     Dosage: UNK
     Route: 065
     Dates: start: 2011
  7. DARUNAVIR\RITONAVIR [Suspect]
     Active Substance: DARUNAVIR\RITONAVIR
     Indication: Product used for unknown indication
     Dosage: UNK
     Route: 065
  8. EMTRICITABINE [Suspect]
     Active Substance: EMTRICITABINE
     Indication: HIV-2 infection
     Dosage: UNK
     Route: 065
     Dates: start: 2011
  9. EMTRICITABINE [Suspect]
     Active Substance: EMTRICITABINE
     Indication: HIV infection
  10. PREZISTA [Suspect]
     Active Substance: DARUNAVIR ETHANOLATE
     Indication: HIV infection
     Dosage: UNK
     Route: 048
     Dates: start: 2011
  11. PREZISTA [Suspect]
     Active Substance: DARUNAVIR ETHANOLATE
     Indication: HIV-2 infection
  12. RALTEGRAVIR [Suspect]
     Active Substance: RALTEGRAVIR
     Indication: HIV-2 infection
     Dosage: UNK
     Route: 065
     Dates: start: 2011
  13. RALTEGRAVIR [Suspect]
     Active Substance: RALTEGRAVIR
     Indication: HIV-2 infection
     Dosage: UNK
     Route: 065
  14. DOLUTEGRAVIR [Concomitant]
     Active Substance: DOLUTEGRAVIR
     Indication: HIV-2 infection
     Dosage: UNK
     Route: 065
  15. DOLUTEGRAVIR [Concomitant]
     Active Substance: DOLUTEGRAVIR
     Indication: HIV infection
  16. MARAVIROC [Concomitant]
     Active Substance: MARAVIROC
     Indication: HIV-2 infection
     Dosage: UNK
     Route: 065
  17. MARAVIROC [Concomitant]
     Active Substance: MARAVIROC
     Indication: HIV infection

REACTIONS (2)
  - Virologic failure [Unknown]
  - Drug resistance [Unknown]

NARRATIVE: CASE EVENT DATE: 20190201
